FAERS Safety Report 9914476 (Version 2)
Quarter: 2015Q3

REPORT INFORMATION
  Report Type: Spontaneous
  Country: US (occurrence: US)
  Receive Date: 20140220
  Receipt Date: 20150722
  Transmission Date: 20151125
  Serious: No
  Sender: FDA-Public Use
  Company Number: US-GILEAD-2012-0053016

PATIENT
  Sex: Male

DRUGS (1)
  1. ATRIPLA [Suspect]
     Active Substance: EFAVIRENZ\EMTRICITABINE\TENOFOVIR DISOPROXIL FUMARATE
     Indication: HIV INFECTION
     Dosage: UNK
     Dates: start: 20120314

REACTIONS (6)
  - Abnormal dreams [Unknown]
  - Psychotic disorder [Unknown]
  - Feeling abnormal [Unknown]
  - Mental disorder [Unknown]
  - Product physical issue [Unknown]
  - Unevaluable event [Unknown]
